FAERS Safety Report 8474454-8 (Version None)
Quarter: 2012Q2

REPORT INFORMATION
  Report Type: 
  Country: None (occurrence: None)
  Receive Date: 20120628
  Receipt Date: 20120625
  Transmission Date: 20120825
  Serious: Yes (Hospitalization)
  Sender: FDA-Public Use
  Company Number: PHHY2012AR054889

PATIENT
  Sex: Female

DRUGS (2)
  1. EXELON [Suspect]
     Indication: AMNESIA
     Dosage: 4.6 MG, QD (5CM), 1 PATCH DAILY
     Route: 062
     Dates: start: 20110501, end: 20120101
  2. EXELON [Suspect]
     Indication: ELECTRIC SHOCK

REACTIONS (2)
  - DEPRESSION [None]
  - EMOTIONAL DISORDER [None]
